FAERS Safety Report 8971445 (Version 1)
Quarter: 2012Q4

REPORT INFORMATION
  Report Type: 
  Country: US (occurrence: US)
  Receive Date: 20121217
  Receipt Date: 20121217
  Transmission Date: 20130627
  Serious: No
  Sender: FDA-Public Use
  Company Number: US-BAYER-2012-121632

PATIENT
  Sex: Male

DRUGS (1)
  1. GADAVIST [Suspect]
     Indication: MRI
     Dosage: 7.5 ml, ONCE
     Dates: start: 20121115, end: 20121115

REACTIONS (1)
  - Vomiting [None]
